FAERS Safety Report 5391723-9 (Version None)
Quarter: 2007Q3

REPORT INFORMATION
  Report Type: 
  Country: None (occurrence: None)
  Receive Date: 20070717
  Receipt Date: 20070710
  Transmission Date: 20080115
  Serious: Yes (Disabling, Other)
  Sender: FDA-Public Use
  Company Number: US019961

PATIENT
  Sex: Male

DRUGS (8)
  1. TRISENOX [Suspect]
     Indication: ACUTE PROMYELOCYTIC LEUKAEMIA
     Dosage: 10.05 MG QD INTRAVENOUS DRIP
     Route: 041
     Dates: start: 20061109, end: 20061116
  2. TRISENOX [Suspect]
     Indication: ACUTE PROMYELOCYTIC LEUKAEMIA
     Dosage: 10.05 MG QD INTRAVENOUS DRIP
     Route: 041
     Dates: start: 20061121, end: 20061124
  3. TRISENOX [Suspect]
     Indication: ACUTE PROMYELOCYTIC LEUKAEMIA
     Dosage: 10.05 MG QD INTRAVENOUS DRIP
     Route: 041
     Dates: start: 20061126, end: 20070105
  4. TRETINOIN [Concomitant]
  5. GABEXATE MESILATE [Concomitant]
  6. DALTEPARIN SODIUM [Concomitant]
  7. GABEXATE MESILATE [Concomitant]
  8. CALCIUM GLUCONATE [Concomitant]

REACTIONS (10)
  - ALTERED STATE OF CONSCIOUSNESS [None]
  - BLOOD CREATININE INCREASED [None]
  - CEREBRAL HYPOPERFUSION [None]
  - CEREBRAL INFARCTION [None]
  - CONDITION AGGRAVATED [None]
  - DYSARTHRIA [None]
  - DYSPHAGIA [None]
  - ELECTROCARDIOGRAM QT PROLONGED [None]
  - HAEMODIALYSIS [None]
  - SOMNOLENCE [None]
